FAERS Safety Report 19885143 (Version 1)
Quarter: 2021Q3

REPORT INFORMATION
  Report Type: Spontaneous
  Country: US (occurrence: US)
  Receive Date: 20210927
  Receipt Date: 20210927
  Transmission Date: 20211014
  Serious: No
  Sender: FDA-Public Use
  Company Number: US-CELLTRION INC.-2021US003720

PATIENT

DRUGS (5)
  1. INFLIXIMAB (UNKNOWN) [Suspect]
     Active Substance: INFLIXIMAB
     Indication: CARDIAC SARCOIDOSIS
     Dosage: WEIGHT?BASED DOSING (3 MG/KG) INTRAVENOUS INFUSION
     Route: 042
  2. INFLIXIMAB (UNKNOWN) [Suspect]
     Active Substance: INFLIXIMAB
     Dosage: WEIGHT?BASED DOSING (10 MG/KG) INTRAVENOUS INFUSION
     Route: 042
  3. INFLIXIMAB (UNKNOWN) [Suspect]
     Active Substance: INFLIXIMAB
     Dosage: WEIGHT?BASED DOSING (6 MG/KG) INTRAVENOUS INFUSION
     Route: 042
  4. INFLIXIMAB (UNKNOWN) [Suspect]
     Active Substance: INFLIXIMAB
     Dosage: WEIGHT?BASED DOSING (5 MG/KG) INTRAVENOUS INFUSION
     Route: 042
  5. PREDNISONE. [Suspect]
     Active Substance: PREDNISONE
     Indication: CARDIAC SARCOIDOSIS
     Dosage: DECREASED BY 5?10 MG APPROXIMATELY EVERY 4 WEEKS

REACTIONS (4)
  - Dyspnoea [Unknown]
  - Drug effective for unapproved indication [Unknown]
  - Palpitations [Unknown]
  - Off label use [Unknown]
